FAERS Safety Report 5828070-4 (Version None)
Quarter: 2008Q3

REPORT INFORMATION
  Report Type: 
  Country: None (occurrence: None)
  Receive Date: 20080730
  Receipt Date: 20070606
  Transmission Date: 20090109
  Serious: No
  Sender: FDA-Public Use
  Company Number: A0654381A

PATIENT
  Age: 4 Month
  Sex: Male

DRUGS (2)
  1. ZANTAC [Suspect]
     Dosage: 2ML TWICE PER DAY
     Route: 048
     Dates: start: 20070111
  2. TYLENOL [Concomitant]
     Indication: TEETHING

REACTIONS (1)
  - SNEEZING [None]
